FAERS Safety Report 4717663-3 (Version None)
Quarter: 2005Q3

REPORT INFORMATION
  Report Type: 
  Country: None (occurrence: None)
  Receive Date: 20050713
  Receipt Date: 20050401
  Transmission Date: 20060218
  Serious: Yes (Other)
  Sender: FDA-Public Use
  Company Number: 374973

PATIENT
  Age: 56 Year
  Sex: Male
  Weight: 65.8 kg

DRUGS (3)
  1. FUZEON [Suspect]
     Indication: HIV INFECTION
     Dosage: 90 MG/ML 2 PER DAY SUBCUTANEOUS
     Route: 058
     Dates: start: 20040223
  2. TRUVADA (EMTRICITABINE/TENOFOVIR) [Concomitant]
  3. IBUPROFEN [Concomitant]

REACTIONS (10)
  - ABDOMINAL DISTENSION [None]
  - DRY SKIN [None]
  - ERYTHEMA [None]
  - EXFOLIATIVE RASH [None]
  - GASTRITIS [None]
  - INJECTION SITE REACTION [None]
  - MEDICATION ERROR [None]
  - VIRAL INFECTION [None]
  - VIRAL LOAD INCREASED [None]
  - VOMITING [None]
